FAERS Safety Report 9367024 (Version 1)
Quarter: 2013Q2

REPORT INFORMATION
  Report Type: Report from Study
  Country: FR (occurrence: FR)
  Receive Date: 20130625
  Receipt Date: 20130625
  Transmission Date: 20140414
  Serious: Yes (Other)
  Sender: FDA-Public Use
  Company Number: FR-CELGENEUS-056-C4047-13062273

PATIENT
  Sex: Male
  Weight: 70 kg

DRUGS (4)
  1. CC-4047 [Suspect]
     Indication: PLASMA CELL MYELOMA
     Dosage: 3 MILLIGRAM
     Route: 048
  2. CC-4047 [Suspect]
     Dosage: MILLIGRAM
     Route: 048
  3. DEXAMETHASONE [Concomitant]
     Indication: PLASMA CELL MYELOMA
     Dosage: MILLIGRAM
     Route: 065
  4. KARDEGIC [Concomitant]
     Indication: PROPHYLAXIS
     Dosage: 160 MILLIGRAM
     Route: 065

REACTIONS (1)
  - Haematotoxicity [Unknown]
